FAERS Safety Report 9515794 (Version 1)
Quarter: 2013Q3

REPORT INFORMATION
  Report Type: Spontaneous
  Country: EG (occurrence: EG)
  Receive Date: 20130911
  Receipt Date: 20130911
  Transmission Date: 20140515
  Serious: Yes (Death)
  Sender: FDA-Public Use
  Company Number: EG-SANOFI-AVENTIS-2013SA089543

PATIENT
  Age: 30 Year
  Sex: Female

DRUGS (1)
  1. CLEXANE [Suspect]
     Indication: PROPHYLAXIS
     Route: 065
     Dates: start: 20130830, end: 20130831

REACTIONS (3)
  - Pulmonary embolism [Fatal]
  - Dyspnoea [Fatal]
  - Cyanosis [Fatal]
